FAERS Safety Report 8239567-4 (Version None)
Quarter: 2012Q1

REPORT INFORMATION
  Report Type: 
  Country: None (occurrence: None)
  Receive Date: 20120328
  Receipt Date: 20120321
  Transmission Date: 20120608
  Serious: Yes (Other)
  Sender: FDA-Public Use
  Company Number: AU-JNJFOC-20120300607

PATIENT
  Sex: Female

DRUGS (13)
  1. STELARA [Suspect]
     Route: 058
     Dates: start: 20101230, end: 20101230
  2. METHOTREXATE [Suspect]
     Route: 065
  3. STELARA [Suspect]
     Route: 058
     Dates: start: 20110607, end: 20110607
  4. STELARA [Suspect]
     Route: 058
     Dates: start: 20120215, end: 20120215
  5. STELARA [Suspect]
     Route: 058
     Dates: start: 20100720, end: 20100720
  6. STELARA [Suspect]
     Route: 058
     Dates: start: 20110608, end: 20110608
  7. STELARA [Suspect]
     Route: 058
     Dates: start: 20101013, end: 20101013
  8. METHOTREXATE [Suspect]
     Indication: PRODUCT USED FOR UNKNOWN INDICATION
     Route: 065
  9. STELARA [Suspect]
     Route: 058
     Dates: start: 20100622, end: 20100622
  10. STELARA [Suspect]
     Indication: PSORIASIS
     Route: 058
     Dates: start: 20110831, end: 20110831
  11. STELARA [Suspect]
     Route: 058
     Dates: start: 20111123, end: 20111123
  12. METHOTREXATE [Suspect]
     Route: 065
  13. STELARA [Suspect]
     Route: 058
     Dates: start: 20110315, end: 20110315

REACTIONS (6)
  - PSORIASIS [None]
  - ARTHRALGIA [None]
  - PULMONARY MASS [None]
  - LYMPHADENITIS [None]
  - LIVER FUNCTION TEST ABNORMAL [None]
  - INTRAOCULAR PRESSURE INCREASED [None]
